FAERS Safety Report 14972628 (Version 4)
Quarter: 2018Q4

REPORT INFORMATION
  Report Type: Spontaneous
  Country: US (occurrence: US)
  Receive Date: 20180605
  Receipt Date: 20181120
  Transmission Date: 20190204
  Serious: Yes (Disabling, Other)
  Sender: FDA-Public Use
  Company Number: US-PFIZER INC-2018224755

PATIENT
  Age: 72 Year
  Sex: Female

DRUGS (6)
  1. DILANTIN [Suspect]
     Active Substance: PHENYTOIN
     Indication: SEIZURE
     Dosage: 100 MG, 2X/DAY (TWO TABS IN AM AND ONE AT HS)
     Route: 048
     Dates: start: 20130724, end: 20140317
  2. DILANTIN [Suspect]
     Active Substance: PHENYTOIN
     Indication: ANEURYSM
     Dosage: 100 MG, 2X/DAY
     Route: 048
     Dates: start: 1976, end: 20130724
  3. KEPPRA [Concomitant]
     Active Substance: LEVETIRACETAM
     Dosage: UNK
  4. FELDENE [Concomitant]
     Active Substance: PIROXICAM
     Dosage: UNK
  5. DIAMOX SEQUELS [Concomitant]
     Active Substance: ACETAZOLAMIDE
     Indication: SEIZURE
     Dosage: UNK
     Dates: start: 2008
  6. NEXIUM [Concomitant]
     Active Substance: ESOMEPRAZOLE MAGNESIUM
     Dosage: 40 MG, UNK
     Route: 048

REACTIONS (3)
  - Neuropathy peripheral [Not Recovered/Not Resolved]
  - Encephalomalacia [Unknown]
  - Cerebellar atrophy [Not Recovered/Not Resolved]

NARRATIVE: CASE EVENT DATE: 20111031
